FAERS Safety Report 11805607 (Version 2)
Quarter: 2015Q4

REPORT INFORMATION
  Report Type: Spontaneous
  Country: CM (occurrence: CM)
  Receive Date: 20151207
  Receipt Date: 20151228
  Transmission Date: 20160305
  Serious: Yes (Disabling)
  Sender: FDA-Public Use
  Company Number: CM-009507513-1512CMR000093

PATIENT
  Age: 38 Year
  Sex: Male
  Weight: 70 kg

DRUGS (3)
  1. CELESTENE [Suspect]
     Active Substance: BETAMETHASONE
     Indication: TONSILLITIS
     Dosage: 4 MG, QD/ 2 TABLETS ONE SHOT
     Route: 048
     Dates: start: 20151113, end: 20151118
  2. DOLIPRANE [Concomitant]
     Active Substance: ACETAMINOPHEN
  3. AUGMENTIN [Concomitant]
     Active Substance: AMOXICILLIN\CLAVULANATE POTASSIUM
     Route: 048

REACTIONS (4)
  - Hiccups [Recovered/Resolved]
  - Vomiting [Recovered/Resolved]
  - Asthenia [Recovered/Resolved]
  - Weight decreased [Unknown]

NARRATIVE: CASE EVENT DATE: 201511
